FAERS Safety Report 5186451-9 (Version None)
Quarter: 2006Q4

REPORT INFORMATION
  Report Type: 
  Country: None (occurrence: None)
  Receive Date: 20061220
  Receipt Date: 20060928
  Transmission Date: 20070319
  Serious: Yes (Life-Threatening)
  Sender: FDA-Public Use
  Company Number: US-AMGEN-US195147

PATIENT
  Sex: Female

DRUGS (22)
  1. PANITUMUMAB [Suspect]
     Indication: COLORECTAL CANCER
     Route: 042
     Dates: start: 20060619
  2. AVASTIN [Concomitant]
     Route: 042
  3. OXALIPLATIN [Concomitant]
     Route: 042
  4. LEUCOVORIN CALCIUM [Concomitant]
     Route: 042
  5. FLUOROURACIL [Concomitant]
     Route: 042
  6. LIPITOR [Concomitant]
     Route: 048
  7. HYDROCODONE BITARTRATE [Concomitant]
     Route: 048
  8. VERAPAMIL HYDROCHLORIDE [Concomitant]
     Route: 048
  9. ASPIRIN [Concomitant]
     Route: 048
  10. AMARYL [Concomitant]
     Route: 048
  11. TRIAMTERENE AND HYDROCHLOROTHIAZIDE [Concomitant]
     Route: 048
  12. BUSPIRONE HCL [Concomitant]
     Route: 048
  13. OMEGA 3 [Concomitant]
     Route: 048
  14. METFORMIN [Concomitant]
     Route: 065
  15. DOXYCYCLINE [Concomitant]
     Route: 048
  16. ELIDEL [Concomitant]
     Route: 061
  17. FERROUS SULFATE TAB [Concomitant]
     Route: 048
  18. TYLENOL [Concomitant]
     Route: 048
  19. BENADRYL [Concomitant]
     Route: 042
  20. DECADRON [Concomitant]
     Route: 042
  21. TAGAMET [Concomitant]
     Route: 042
  22. ANZEMET [Concomitant]
     Route: 042

REACTIONS (3)
  - HYPOCALCAEMIA [None]
  - HYPOKALAEMIA [None]
  - HYPOMAGNESAEMIA [None]
